FAERS Safety Report 4463276-0 (Version None)
Quarter: 2004Q3

REPORT INFORMATION
  Report Type: 
  Country: None (occurrence: None)
  Receive Date: 20040930
  Receipt Date: 20040922
  Transmission Date: 20050211
  Serious: Yes (Hospitalization)
  Sender: FDA-Public Use
  Company Number: A01200403878

PATIENT
  Age: 78 Year
  Sex: Female

DRUGS (5)
  1. ARIXTRA [Suspect]
  2. PARACETAMOL [Concomitant]
     Route: 048
  3. TRAMADOL HCL [Concomitant]
  4. FERROUS SULFATE TAB [Concomitant]
  5. AMOXICILLIN + CLAVULANIC ACID [Concomitant]

REACTIONS (4)
  - HAEMATOMA [None]
  - PAIN [None]
  - WOUND HAEMORRHAGE [None]
  - WOUND INFECTION [None]
